FAERS Safety Report 6445666-X (Version None)
Quarter: 2009Q4

REPORT INFORMATION
  Report Type: 
  Country: None (occurrence: None)
  Receive Date: 20091118
  Receipt Date: 20091103
  Transmission Date: 20100525
  Serious: Yes (Hospitalization)
  Sender: FDA-Public Use
  Company Number: CA-GENENTECH-292880

PATIENT
  Sex: Male

DRUGS (3)
  1. BEVACIZUMAB [Suspect]
     Indication: RECTAL CANCER
     Dosage: 585 MG, QD
     Route: 042
     Dates: start: 20090309
  2. CAPECITABINE [Suspect]
     Indication: RECTAL CANCER
     Dosage: 1800 MG, QD
     Route: 048
     Dates: start: 20090323
  3. OXALIPLATIN [Suspect]
     Indication: RECTAL CANCER
     Dosage: 110 MG, QD
     Route: 042
     Dates: start: 20090323

REACTIONS (2)
  - GASTROENTERITIS RADIATION [None]
  - SMALL INTESTINAL OBSTRUCTION [None]
